FAERS Safety Report 6247473-X (Version None)
Quarter: 2009Q2

REPORT INFORMATION
  Report Type: 
  Country: None (occurrence: None)
  Receive Date: 20090626
  Receipt Date: 20090622
  Transmission Date: 20091009
  Serious: Yes (Death)
  Sender: FDA-Public Use
  Company Number: DE-BAYER-200923945GPV

PATIENT
  Age: 66 Year

DRUGS (6)
  1. ZEVALIN [Suspect]
     Indication: NON-HODGKIN'S LYMPHOMA
     Dosage: DAY -21
  2. ZEVALIN [Suspect]
     Dosage: DAY -14
  3. YTRACIS [Suspect]
     Indication: NON-HODGKIN'S LYMPHOMA
     Dosage: DAY -14
  4. FLUDARABINE PHOSPHATE [Suspect]
     Indication: STEM CELL TRANSPLANT
     Dosage: DAY -21
  5. INDIUM 111 [Suspect]
     Indication: STEM CELL TRANSPLANT
     Dosage: DAY -21
  6. CYCLOSPORINE [Concomitant]
     Indication: IMMUNOSUPPRESSANT DRUG THERAPY

REACTIONS (2)
  - CARDIAC FAILURE [None]
  - RESPIRATORY FAILURE [None]
